FAERS Safety Report 6581256-6 (Version None)
Quarter: 2010Q1

REPORT INFORMATION
  Report Type: 
  Country: None (occurrence: None)
  Receive Date: 20100215
  Receipt Date: 20100203
  Transmission Date: 20100710
  Serious: Yes (Hospitalization)
  Sender: FDA-Public Use
  Company Number: DK-TEVA-221146ISR

PATIENT
  Sex: Female

DRUGS (4)
  1. METHOTREXATE [Suspect]
     Indication: POLYMYALGIA RHEUMATICA
     Route: 048
     Dates: start: 20091110
  2. PREDNISOLONE [Concomitant]
     Indication: POLYMYALGIA RHEUMATICA
     Route: 048
  3. ESTRADIOL [Concomitant]
     Indication: OESTROGEN DEFICIENCY
     Route: 067
     Dates: start: 20090601, end: 20091105
  4. FOLIC ACID [Concomitant]
     Route: 048
     Dates: end: 20091105

REACTIONS (1)
  - ATRIAL FIBRILLATION [None]
